FAERS Safety Report 8282798-8 (Version None)
Quarter: 2012Q2

REPORT INFORMATION
  Report Type: 
  Country: None (occurrence: None)
  Receive Date: 20120413
  Receipt Date: 20120402
  Transmission Date: 20120825
  Serious: Yes (Other)
  Sender: FDA-Public Use
  Company Number: CH-ROCHE-1056983

PATIENT
  Age: 46 Year
  Sex: Female

DRUGS (1)
  1. TOCILIZUMAB [Suspect]
     Indication: CASTLEMAN'S DISEASE
     Route: 065

REACTIONS (1)
  - ARTERIAL THROMBOSIS [None]
